FAERS Safety Report 5421760-7 (Version None)
Quarter: 2007Q3

REPORT INFORMATION
  Report Type: 
  Country: None (occurrence: None)
  Receive Date: 20070821
  Receipt Date: 20070809
  Transmission Date: 20080115
  Serious: Yes (Death)
  Sender: FDA-Public Use
  Company Number: US-PFIZER INC-2007068804

PATIENT
  Age: 47 Year
  Sex: Female

DRUGS (9)
  1. DILANTIN [Suspect]
  2. XANAX [Suspect]
     Route: 048
  3. PAXIL [Suspect]
     Route: 048
  4. PHENTERMINE HYDROCHLORIDE [Suspect]
     Route: 048
  5. OXYCODONE HCL [Suspect]
     Route: 048
  6. ACETAMINOPHEN [Suspect]
     Route: 048
  7. AMITRIPTYLINE HCL [Suspect]
     Route: 048
  8. FLURAZEPAM [Suspect]
     Route: 048
  9. NORTRIPTYLINE HCL [Suspect]
     Route: 048

REACTIONS (2)
  - COMPLETED SUICIDE [None]
  - DRUG TOXICITY [None]
